FAERS Safety Report 4325300-5 (Version None)
Quarter: 2004Q1

REPORT INFORMATION
  Report Type: 
  Country: None (occurrence: None)
  Receive Date: 20040326
  Receipt Date: 20040326
  Transmission Date: 20041129
  Serious: No
  Sender: FDA-Public Use
  Company Number: None

PATIENT
  Sex: Female
  Weight: 61.2356 kg

DRUGS (1)
  1. RHINO CORT AQUA 8.60 ASTRA ZENECA [Suspect]
     Indication: MULTIPLE ALLERGIES
     Dosage: 1 SPRAY DAILY NASAL
     Route: 045
     Dates: start: 20040113, end: 20040225

REACTIONS (6)
  - BLINDNESS [None]
  - MACULAR OEDEMA [None]
  - RETINAL DISORDER [None]
  - VASCULAR OCCLUSION [None]
  - VISION BLURRED [None]
  - VISUAL DISTURBANCE [None]
